FAERS Safety Report 17354802 (Version 1)
Quarter: 2020Q1

REPORT INFORMATION
  Report Type: Spontaneous
  Country: US (occurrence: US)
  Receive Date: 20200131
  Receipt Date: 20200131
  Transmission Date: 20200409
  Serious: Yes (Other)
  Sender: FDA-Public Use
  Company Number: US-SA-2020SA024230

PATIENT
  Sex: Male

DRUGS (1)
  1. ZANTAC 75 [Suspect]
     Active Substance: RANITIDINE HYDROCHLORIDE
     Dosage: 300 MG, QD, FOR APPROXIMATELY NINE (9) YEARS
     Dates: start: 2010, end: 2019

REACTIONS (2)
  - Colorectal cancer metastatic [Unknown]
  - Anxiety [Unknown]
